FAERS Safety Report 7833415-X (Version None)
Quarter: 2011Q4

REPORT INFORMATION
  Report Type: 
  Country: None (occurrence: None)
  Receive Date: 20111024
  Receipt Date: 20111018
  Transmission Date: 20120403
  Serious: Yes (Other)
  Sender: FDA-Public Use
  Company Number: CN-GENZYME-THYM-1002591

PATIENT
  Age: 43 Year
  Sex: Male

DRUGS (24)
  1. CYCLOSPORINE [Concomitant]
     Route: 048
  2. SODIUM BICARBONATE [Concomitant]
     Indication: PH URINE
     Route: 065
  3. BUSULFAN [Concomitant]
     Indication: BONE MARROW CONDITIONING REGIMEN
  4. NEUPOGEN [Concomitant]
     Dosage: 5 MCG/KG, QD
     Route: 065
  5. NEUMEGA [Concomitant]
     Indication: PROPHYLAXIS AGAINST GRAFT VERSUS HOST DISEASE
     Dosage: 1.5 MG, QD
     Route: 058
  6. GANCICLOVIR [Concomitant]
     Indication: PROPHYLAXIS
     Dosage: UNK
     Route: 065
  7. ACYCLOVIR [Concomitant]
     Indication: INFECTION PROPHYLAXIS
     Dosage: UNK
     Route: 042
  8. MESNA [Concomitant]
     Indication: PROPHYLAXIS
     Dosage: UNK
     Route: 065
  9. FAT EMULSIONS [Concomitant]
     Indication: PROPHYLAXIS
     Route: 065
  10. THYMOGLOBULIN [Suspect]
     Indication: PROPHYLAXIS AGAINST GRAFT VERSUS HOST DISEASE
  11. CYTARABINE [Concomitant]
     Indication: BONE MARROW CONDITIONING REGIMEN
     Dosage: UNK
     Route: 065
  12. CYCLOSPORINE [Concomitant]
     Indication: PROPHYLAXIS AGAINST GRAFT VERSUS HOST DISEASE
     Route: 042
  13. IMMUNE GLOBULIN NOS [Concomitant]
     Indication: PROPHYLAXIS
     Dosage: UNK
     Route: 042
  14. SEMUSTINE CAP [Concomitant]
     Indication: BONE MARROW CONDITIONING REGIMEN
  15. HEPARIN [Concomitant]
     Indication: PROPHYLAXIS
     Dosage: 2500 U, QD
     Route: 065
  16. SALVIA MILTIORRHIZA [Concomitant]
     Indication: PROPHYLAXIS
     Dosage: 250 ML, QD
     Route: 065
  17. MYCOPHENOLATE MOFETIL [Concomitant]
     Indication: PROPHYLAXIS AGAINST GRAFT VERSUS HOST DISEASE
     Dosage: 0.5 G, BID
     Route: 048
  18. THYMOGLOBULIN [Suspect]
     Indication: BONE MARROW CONDITIONING REGIMEN
     Dosage: 2.5 MG/KG, QD
     Route: 042
     Dates: start: 20071124, end: 20071128
  19. NEUPOGEN [Concomitant]
     Indication: HAEMATOPOIETIC STEM CELL MOBILISATION
     Dosage: UNK
     Route: 058
  20. METHOTREXATE [Concomitant]
     Indication: PROPHYLAXIS AGAINST GRAFT VERSUS HOST DISEASE
     Dosage: 15 MG/M2, ONCE
     Route: 042
  21. METHOTREXATE [Concomitant]
     Dosage: 30 MG/M2, UNK
     Route: 042
  22. AMINO ACIDS NOS [Concomitant]
     Indication: PROPHYLAXIS
     Route: 065
  23. CYCLOPHOSPHAMIDE [Concomitant]
     Indication: BONE MARROW CONDITIONING REGIMEN
     Dosage: 50 MG/KG, QD
     Route: 042
  24. CILASTATIN W [Concomitant]
     Indication: PROPHYLAXIS
     Dosage: UNK
     Route: 065

REACTIONS (2)
  - CHRONIC GRAFT VERSUS HOST DISEASE [None]
  - CYSTITIS HAEMORRHAGIC [None]
